FAERS Safety Report 20300081 (Version 1)
Quarter: 2022Q1

REPORT INFORMATION
  Report Type: Spontaneous
  Country: US (occurrence: US)
  Receive Date: 20220105
  Receipt Date: 20220105
  Transmission Date: 20220423
  Serious: No
  Sender: FDA-Public Use
  Company Number: US-JNJFOC-20220104024

PATIENT
  Sex: Male

DRUGS (1)
  1. REMICADE [Suspect]
     Active Substance: INFLIXIMAB
     Indication: Hidradenitis
     Dosage: CURRENT DOSE : 2449.5 MG. INFUSED OVER 4.5 HOURS SINCE THE DILUTION VOLUME IS 1000 ML
     Route: 042

REACTIONS (3)
  - Off label use [Unknown]
  - Product preparation issue [Unknown]
  - Product use in unapproved indication [Unknown]
